FAERS Safety Report 5925765-9 (Version None)
Quarter: 2008Q4

REPORT INFORMATION
  Report Type: 
  Country: None (occurrence: None)
  Receive Date: 20081021
  Receipt Date: 20081010
  Transmission Date: 20090506
  Serious: Yes (Life-Threatening, Hospitalization)
  Sender: FDA-Public Use
  Company Number: LB-SANOFI-SYNTHELABO-A01200812683

PATIENT
  Age: 52 Year
  Sex: Female

DRUGS (4)
  1. BENADRYL [Concomitant]
     Indication: PREMEDICATION
     Dosage: 50 MG
     Route: 041
     Dates: start: 20080925
  2. DECADRON [Concomitant]
     Indication: PREMEDICATION
     Dosage: 16 MG
     Route: 041
     Dates: start: 20080925
  3. ELOXATIN [Suspect]
     Indication: COLORECTAL CANCER METASTATIC
     Dosage: 140 MG
     Route: 041
     Dates: start: 20081010, end: 20081010
  4. ZANTAC [Concomitant]
     Indication: PREMEDICATION
     Dosage: 100 MG
     Route: 041
     Dates: start: 20080925

REACTIONS (6)
  - DIZZINESS [None]
  - FLUSHING [None]
  - HYPERHIDROSIS [None]
  - HYPOTENSION [None]
  - RESPIRATORY DISTRESS [None]
  - WHEEZING [None]
